FAERS Safety Report 8563731 (Version 3)
Quarter: 2012Q4

REPORT INFORMATION
  Report Type: 
  Country: US (occurrence: US)
  Receive Date: 20120515
  Receipt Date: 20121226
  Transmission Date: 20130627
  Serious: Yes (Other)
  Sender: FDA-Public Use
  Company Number: US-BAYER-2012-053868

PATIENT

DRUGS (4)
  1. ALEVE CAPLET/TABLET,MIDOL EXTENDED RELIEF CAPLET [Suspect]
  2. ALEVE CAPLET/TABLET,MIDOL EXTENDED RELIEF CAPLET [Suspect]
  3. ADVIL [Concomitant]
  4. EFFEXOR XR [Concomitant]
     Dosage: 37.5 mg, UNK

REACTIONS (4)
  - Toothache [None]
  - Tooth abscess [None]
  - Abscess bacterial [None]
  - Tooth extraction [None]
